FAERS Safety Report 8499007-7 (Version None)
Quarter: 2012Q3

REPORT INFORMATION
  Report Type: 
  Country: None (occurrence: None)
  Receive Date: 20120710
  Receipt Date: 20090629
  Transmission Date: 20120928
  Serious: No
  Sender: FDA-Public Use
  Company Number: 2009BI020031

PATIENT
  Sex: Female

DRUGS (2)
  1. TYSABRI [Suspect]
     Indication: MULTIPLE SCLEROSIS
     Route: 042
     Dates: start: 20090617, end: 20120202
  2. AVONEX [Concomitant]
     Indication: MULTIPLE SCLEROSIS
     Route: 030

REACTIONS (3)
  - CONTUSION [None]
  - MUSCULAR WEAKNESS [None]
  - COORDINATION ABNORMAL [None]
